FAERS Safety Report 12238230 (Version 1)
Quarter: 2016Q2

REPORT INFORMATION
  Report Type: Spontaneous
  Country: FR (occurrence: FR)
  Receive Date: 20160405
  Receipt Date: 20160405
  Transmission Date: 20160815
  Serious: Yes (Other)
  Sender: FDA-Public Use
  Company Number: FR-PFIZER INC-2016185631

PATIENT
  Age: 58 Year
  Sex: Male

DRUGS (1)
  1. SILDENAFIL PFIZER [Suspect]
     Active Substance: SILDENAFIL
     Dosage: 1/2 OR 1/3 TABLET OF 50 MG AS NEEDED
     Dates: start: 201511

REACTIONS (3)
  - Chloropsia [Not Recovered/Not Resolved]
  - Vitreous detachment [Not Recovered/Not Resolved]
  - Visual impairment [Not Recovered/Not Resolved]

NARRATIVE: CASE EVENT DATE: 201511
